FAERS Safety Report 5071509-5 (Version None)
Quarter: 2006Q3

REPORT INFORMATION
  Report Type: 
  Country: None (occurrence: None)
  Receive Date: 20060803
  Receipt Date: 20060803
  Transmission Date: 20061208
  Serious: No
  Sender: FDA-Public Use
  Company Number: None

PATIENT
  Age: 53 Year
  Sex: Female
  Weight: 63.5036 kg

DRUGS (1)
  1. MS CONTIN [Suspect]
     Indication: BACK PAIN
     Dosage: 60MG Q12 HOURS PO
     Route: 048
     Dates: start: 20060523, end: 20060802

REACTIONS (1)
  - PRURITUS GENERALISED [None]
